FAERS Safety Report 10664979 (Version 1)
Quarter: 2014Q4

REPORT INFORMATION
  Report Type: Spontaneous
  Country: US (occurrence: US)
  Receive Date: 20141219
  Receipt Date: 20141219
  Transmission Date: 20150529
  Serious: Yes (Hospitalization)
  Sender: FDA-Public Use
  Company Number: US-GILEAD-2014-0128152

PATIENT
  Age: 79 Year
  Sex: Male

DRUGS (7)
  1. WARFARIN [Concomitant]
     Active Substance: WARFARIN
  2. ISOSORBIDE [Concomitant]
     Active Substance: ISOSORBIDE
  3. LETAIRIS [Suspect]
     Active Substance: AMBRISENTAN
     Indication: PULMONARY ARTERIAL HYPERTENSION
     Dosage: 10 MG, QD
     Route: 065
     Dates: start: 20141023
  4. CARVEDILOL. [Concomitant]
     Active Substance: CARVEDILOL
  5. CRESTOR [Concomitant]
     Active Substance: ROSUVASTATIN CALCIUM
  6. HYDRALAZINE [Concomitant]
     Active Substance: HYDRALAZINE HYDROCHLORIDE
  7. FUROSEMIDE. [Concomitant]
     Active Substance: FUROSEMIDE

REACTIONS (2)
  - Dyspnoea [Unknown]
  - Fluid retention [Unknown]

NARRATIVE: CASE EVENT DATE: 20141215
